FAERS Safety Report 10457333 (Version 1)
Quarter: 2014Q3

REPORT INFORMATION
  Report Type: Spontaneous
  Country: US (occurrence: US)
  Receive Date: 20140916
  Receipt Date: 20140916
  Transmission Date: 20150326
  Serious: Yes (Hospitalization)
  Sender: FDA-Public Use
  Company Number: US-BAYER-2014-134975

PATIENT
  Age: 67 Year
  Sex: Female
  Weight: 58.4 kg

DRUGS (4)
  1. STIVARGA [Suspect]
     Active Substance: REGORAFENIB
     Indication: COLON CANCER STAGE IV
     Dosage: 160 MG QD FOR FIRST 21 DAYS OF 28 DAYS
     Route: 048
     Dates: start: 20140510, end: 20140520
  2. STIVARGA [Suspect]
     Active Substance: REGORAFENIB
     Indication: METASTASES TO LUNG
  3. LOSARTAN [Concomitant]
     Active Substance: LOSARTAN
     Dosage: 100 MG
     Dates: start: 201402
  4. AMLODIPINE [Concomitant]
     Active Substance: AMLODIPINE BESYLATE
     Dosage: 5 MG
     Dates: start: 201402

REACTIONS (10)
  - Myalgia [None]
  - Rash papular [None]
  - Pain [None]
  - Stevens-Johnson syndrome [None]
  - Rash macular [None]
  - Headache [None]
  - Diarrhoea [None]
  - Chills [None]
  - Rash [None]
  - Oropharyngeal pain [None]

NARRATIVE: CASE EVENT DATE: 201405
